FAERS Safety Report 17654827 (Version 1)
Quarter: 2020Q2

REPORT INFORMATION
  Report Type: Report from Study
  Country: US (occurrence: US)
  Receive Date: 20200410
  Receipt Date: 20200410
  Transmission Date: 20200713
  Serious: Yes (Death, Other)
  Sender: FDA-Public Use
  Company Number: US-ASTRAZENECA-2020SE48160

PATIENT
  Age: 24860 Day
  Sex: Female

DRUGS (1)
  1. TAGRISSO [Suspect]
     Active Substance: OSIMERTINIB
     Indication: SMALL CELL LUNG CANCER
     Route: 048
     Dates: end: 20200315

REACTIONS (4)
  - White blood cell count decreased [Unknown]
  - Malignant neoplasm progression [Unknown]
  - Death [Fatal]
  - Central nervous system lesion [Unknown]
